FAERS Safety Report 7358408-0 (Version None)
Quarter: 2011Q1

REPORT INFORMATION
  Report Type: 
  Country: None (occurrence: None)
  Receive Date: 20110314
  Receipt Date: 20110314
  Transmission Date: 20110831
  Serious: Yes (Death)
  Sender: FDA-Public Use
  Company Number: None

PATIENT
  Sex: Male
  Weight: 104 kg

DRUGS (2)
  1. BORTIZOMIB [Suspect]
     Dates: start: 20110101, end: 20110210
  2. LENALIDOMIDE [Suspect]
     Indication: MULTIPLE MYELOMA
     Dates: start: 20110101, end: 20110201

REACTIONS (4)
  - PULMONARY FIBROSIS [None]
  - PULMONARY EMBOLISM [None]
  - RESPIRATORY FAILURE [None]
  - RENAL FAILURE ACUTE [None]
